FAERS Safety Report 8247205 (Version 2)
Quarter: 2015Q3

REPORT INFORMATION
  Report Type: Spontaneous
  Country: JP (occurrence: None)
  Receive Date: 20111109
  Receipt Date: 20150715
  Transmission Date: 20151125
  Serious: Yes (Other)
  Sender: FDA-Public Use
  Company Number: 2009JP006342

PATIENT
  Age: 24 Year
  Sex: Female
  Weight: 37 kg

DRUGS (11)
  1. FLUDARABINE [Concomitant]
     Active Substance: FLUDARABINE PHOSPHATE
  2. ATG RABBIT (ANTITHYMOCYTE IMMUNOGLOBULIN (RABBIT))) [Concomitant]
  3. HYDROCORTISONE SODIUM SUCCINATE [Concomitant]
     Active Substance: HYDROCORTISONE SODIUM SUCCINATE
  4. PROGRAF [Suspect]
     Active Substance: TACROLIMUS\TACROLIMUS ANHYDROUS
     Indication: PROPHYLAXIS AGAINST GRAFT VERSUS HOST DISEASE
     Dates: start: 200711, end: 200711
  5. PROGRAF [Suspect]
     Active Substance: TACROLIMUS\TACROLIMUS ANHYDROUS
     Dates: start: 200711, end: 200711
  6. BUSULFAN [Concomitant]
     Active Substance: BUSULFAN
  7. SULPYRINE (METAMIZOLE SODIUM) [Concomitant]
  8. METHYLPREDNISOLONE. [Concomitant]
     Active Substance: METHYLPREDNISOLONE
  9. MYCOPHENOLATE MOFETIL. [Concomitant]
     Active Substance: MYCOPHENOLATE MOFETIL
  10. CICLOSPORIN [Concomitant]
     Active Substance: CYCLOSPORINE
  11. CHLORPHENIRAMINE /00072501/ (CHLORPHENAMINE) [Concomitant]

REACTIONS (20)
  - Stem cell transplant [None]
  - Sedation [None]
  - Apathy [None]
  - Anxiety [None]
  - Serum ferritin increased [None]
  - Refusal of treatment by patient [None]
  - Fall [None]
  - Liver disorder [None]
  - Encephalopathy [None]
  - Iron overload [None]
  - Multi-organ disorder [None]
  - Cerebral atrophy [None]
  - Suicidal ideation [None]
  - Cystitis haemorrhagic [None]
  - Depression [None]
  - Insomnia [None]
  - Bone marrow failure [None]
  - Drug effect decreased [None]
  - Hepatic function abnormal [None]
  - Pancytopenia [None]

NARRATIVE: CASE EVENT DATE: 20071119
